FAERS Safety Report 26057507 (Version 3)
Quarter: 2025Q4

REPORT INFORMATION
  Report Type: Spontaneous
  Country: EU (occurrence: EU)
  Receive Date: 20251118
  Receipt Date: 20251203
  Transmission Date: 20260117
  Serious: Yes (Other)
  Sender: AUROBINDO
  Company Number: EU-LRB-01093770

PATIENT
  Age: 70 Year
  Sex: Female
  Weight: 73 kg

DRUGS (1)
  1. CIPROFLOXACIN HYDROCHLORIDE [Suspect]
     Active Substance: CIPROFLOXACIN HYDROCHLORIDE
     Indication: Cystitis
     Dosage: 1 DOSAGE FORM
     Dates: start: 20250922, end: 20250929

REACTIONS (5)
  - Neuropathy peripheral [Not Recovered/Not Resolved]
  - Deafness unilateral [Recovering/Resolving]
  - Product substitution issue [Unknown]
  - Myalgia [Not Recovered/Not Resolved]
  - Condition aggravated [Not Recovered/Not Resolved]
